FAERS Safety Report 4885459-8 (Version None)
Quarter: 2005Q4

REPORT INFORMATION
  Report Type: 
  Country: None (occurrence: None)
  Receive Date: 20051220
  Receipt Date: 20051018
  Transmission Date: 20060501
  Serious: Yes (Other)
  Sender: FDA-Public Use
  Company Number: HQWYE126020OCT05

PATIENT
  Age: 61 Year
  Sex: Female
  Weight: 90.8 kg

DRUGS (6)
  1. EFFEXOR XR [Suspect]
     Indication: ANXIETY
     Dosage: 150 MG 2X PER 1 DAY, ORAL
     Route: 048
     Dates: start: 20030101
  2. LEVOTHYROXINE SODIUM [Concomitant]
  3. AMBIEN [Concomitant]
  4. AMITRIPTYLINE HCL [Concomitant]
  5. BENADRYL [Concomitant]
  6. VITAMINS (VITAMINS) [Concomitant]

REACTIONS (4)
  - ANXIETY [None]
  - CONDITION AGGRAVATED [None]
  - DEPRESSION [None]
  - SUICIDAL IDEATION [None]
